FAERS Safety Report 9217284 (Version 2)
Quarter: 2013Q2

REPORT INFORMATION
  Report Type: Spontaneous
  Country: US (occurrence: US)
  Receive Date: 20130408
  Receipt Date: 20130515
  Transmission Date: 20140414
  Serious: Yes (Other)
  Sender: FDA-Public Use
  Company Number: US-PFIZER INC-2013109761

PATIENT
  Age: 55 Year
  Sex: Male
  Weight: 99.32 kg

DRUGS (3)
  1. LYRICA [Suspect]
     Indication: BACK PAIN
     Dosage: 150 MG, 4X/DAY
     Dates: start: 2013, end: 20130329
  2. KEFLEX [Suspect]
     Indication: OEDEMA
     Dosage: UNK
  3. HYDROCHLOROTHIAZIDE [Concomitant]
     Indication: HYPERTENSION
     Dosage: 10 MG, 1X/DAY

REACTIONS (7)
  - White blood cell count increased [Unknown]
  - Withdrawal syndrome [Not Recovered/Not Resolved]
  - Malaise [Not Recovered/Not Resolved]
  - Chills [Not Recovered/Not Resolved]
  - Pyrexia [Not Recovered/Not Resolved]
  - Oedema [Unknown]
  - Drug ineffective [Unknown]
